FAERS Safety Report 20077293 (Version 1)
Quarter: 2021Q4

REPORT INFORMATION
  Report Type: Spontaneous
  Country: US (occurrence: US)
  Receive Date: 20211116
  Receipt Date: 20211116
  Transmission Date: 20220303
  Serious: Yes (Other)
  Sender: FDA-Public Use
  Company Number: US-KALA PHARAMACEUTICALS-2021KLA00110

PATIENT
  Sex: Female

DRUGS (6)
  1. EYSUVIS [Suspect]
     Active Substance: LOTEPREDNOL ETABONATE
     Indication: Dry eye
     Dosage: 1 DROP, 4X/DAY IN EACH EYE
     Route: 047
     Dates: start: 2021, end: 2021
  2. LEVOTHYROXINE [Concomitant]
     Active Substance: LEVOTHYROXINE
  3. LIDOCAINE PATCH [Concomitant]
     Active Substance: LIDOCAINE
  4. HYDROCORTISONE [Concomitant]
     Active Substance: HYDROCORTISONE
  5. TRIAMCINOLONE [Concomitant]
     Active Substance: TRIAMCINOLONE
  6. SEVERAL UNSPECIFIED VITAMINS [Concomitant]

REACTIONS (2)
  - Intraocular pressure increased [Recovered/Resolved]
  - Corneal oedema [Unknown]

NARRATIVE: CASE EVENT DATE: 20210101
